FAERS Safety Report 19797435 (Version 1)
Quarter: 2021Q3

REPORT INFORMATION
  Report Type: Spontaneous
  Country: LT (occurrence: LT)
  Receive Date: 20210907
  Receipt Date: 20210907
  Transmission Date: 20211014
  Serious: Yes (Other)
  Sender: FDA-Public Use
  Company Number: LT-TEVA-2021-LT-1947280

PATIENT
  Age: 79 Year
  Sex: Female

DRUGS (2)
  1. TORASEMID 10 MG [Suspect]
     Active Substance: TORSEMIDE
     Indication: CARDIAC FAILURE
     Dosage: 10 MILLIGRAM DAILY;
     Route: 065
  2. NATRIXAM 1,5 MG / 5 MG MODIFIKUOTO ATPALAIDAVIMO TABLETES [Interacting]
     Active Substance: AMLODIPINE\INDAPAMIDE
     Indication: HYPERTENSION
     Dosage: FOR ACTIVE INGREDIENT AMLODIPIN THE STRENGTH IS 5 MILLIGRAM .FOR ACTIVE INGREDIENT INDAPAMID THE STR
     Route: 065

REACTIONS (2)
  - Hyponatraemia [Recovered/Resolved]
  - Drug interaction [Recovered/Resolved]

NARRATIVE: CASE EVENT DATE: 20210801
